FAERS Safety Report 18611043 (Version 2)
Quarter: 2020Q4

REPORT INFORMATION
  Report Type: Report from Study
  Country: VN (occurrence: VN)
  Receive Date: 20201214
  Receipt Date: 20201221
  Transmission Date: 20210114
  Serious: Yes (Other)
  Sender: FDA-Public Use
  Company Number: VN-ASTRAZENECA-2020SF61620

PATIENT
  Age: 21608 Day
  Sex: Male

DRUGS (25)
  1. CEFUROXIM [Concomitant]
     Active Substance: CEFUROXIME
     Indication: OROPHARYNGEAL PAIN
     Route: 048
     Dates: start: 20201014, end: 20201018
  2. GLICIAZID [Concomitant]
     Indication: TYPE 2 DIABETES MELLITUS
     Route: 048
     Dates: end: 20201119
  3. HEPA-MERZ [Concomitant]
     Indication: HEPATIC ENZYME ABNORMAL
     Route: 042
     Dates: start: 20201117, end: 20201126
  4. ACALABRUTINIB. [Suspect]
     Active Substance: ACALABRUTINIB
     Indication: CHRONIC LYMPHOCYTIC LEUKAEMIA
     Route: 048
     Dates: start: 20201103, end: 20201118
  5. GLICIAZID [Concomitant]
     Indication: TYPE 2 DIABETES MELLITUS
     Route: 048
     Dates: start: 20201127
  6. L-ORNITHIN L-ASPARTAT [Concomitant]
     Indication: LIVER DISORDER
     Route: 048
     Dates: start: 20201127, end: 20201210
  7. ACALABRUTINIB. [Suspect]
     Active Substance: ACALABRUTINIB
     Indication: CHRONIC LYMPHOCYTIC LEUKAEMIA
     Route: 048
     Dates: start: 20201005, end: 20201102
  8. OMNIPAQUE [Concomitant]
     Active Substance: IOHEXOL
     Indication: COMPUTERISED TOMOGRAM
     Dosage: 24.0MG ONCE/SINGLE ADMINISTRATION
     Route: 042
     Dates: start: 20200907, end: 20200907
  9. SODIUM CHLORIDE. [Concomitant]
     Active Substance: SODIUM CHLORIDE
     Indication: SUPPLEMENTATION THERAPY
     Route: 042
     Dates: start: 20201007, end: 20201012
  10. SODIUM CHLORIDE. [Concomitant]
     Active Substance: SODIUM CHLORIDE
     Indication: SUPPLEMENTATION THERAPY
     Route: 042
     Dates: start: 20200922, end: 20201001
  11. ACETATE RINGER [Concomitant]
     Indication: SUPPLEMENTATION THERAPY
     Route: 042
     Dates: start: 20201007, end: 20201012
  12. ACETATE RINGER [Concomitant]
     Indication: SUPPLEMENTATION THERAPY
     Route: 042
     Dates: start: 20201119, end: 20201126
  13. TELMISARTAN. [Concomitant]
     Active Substance: TELMISARTAN
     Indication: HYPERTENSION
     Route: 048
     Dates: end: 20201119
  14. MEDIPHYLAMIN [Concomitant]
     Indication: SUPPLEMENTATION THERAPY
     Route: 048
     Dates: start: 20200902, end: 20200908
  15. LIDOCAIN 2% [Concomitant]
     Indication: ANAESTHESIA
     Route: 061
     Dates: start: 20200903, end: 20200903
  16. ALPHA CHYMOTRYPSIN [Concomitant]
     Active Substance: CHYMOTRYPSIN
     Indication: OROPHARYNGEAL PAIN
     Route: 048
     Dates: start: 20201014, end: 20201018
  17. L-ORNITHIN L-ASPARTAT [Concomitant]
     Indication: LIVER DISORDER
     Route: 048
     Dates: start: 20201002, end: 20201011
  18. THYMOMODULIN [Concomitant]
     Indication: COMBINED IMMUNODEFICIENCY
     Route: 048
     Dates: start: 20201127, end: 20201210
  19. SODIUM CHLORIDE. [Concomitant]
     Active Substance: SODIUM CHLORIDE
     Indication: SUPPLEMENTATION THERAPY
     Route: 042
     Dates: start: 20201119, end: 20201126
  20. THYMOMODULIN [Concomitant]
     Indication: COMBINED IMMUNODEFICIENCY
     Route: 048
     Dates: start: 20201103, end: 20201116
  21. L-ORNITHIN L-ASPARTAT [Concomitant]
     Indication: LIVER DISORDER
     Route: 048
     Dates: start: 20201103, end: 20201116
  22. ACETATE RINGER [Concomitant]
     Indication: SUPPLEMENTATION THERAPY
     Route: 042
     Dates: start: 20200922, end: 20201001
  23. LORATADIN [Concomitant]
     Active Substance: LORATADINE
     Indication: OROPHARYNGEAL PAIN
     Route: 048
     Dates: start: 20201014, end: 20201018
  24. TELMISARTAN. [Concomitant]
     Active Substance: TELMISARTAN
     Indication: HYPERTENSION
     Route: 048
     Dates: start: 20201127
  25. DIAMICRON MR [Concomitant]
     Active Substance: GLICLAZIDE
     Indication: TYPE 2 DIABETES MELLITUS
     Route: 048
     Dates: start: 20201121, end: 20201126

REACTIONS (1)
  - Drug-induced liver injury [Recovering/Resolving]

NARRATIVE: CASE EVENT DATE: 20201202
